FAERS Safety Report 8968855 (Version 1)
Quarter: 2012Q4

REPORT INFORMATION
  Report Type: 
  Country: US (occurrence: US)
  Receive Date: 20121218
  Receipt Date: 20121218
  Transmission Date: 20130627
  Serious: No
  Sender: FDA-Public Use
  Company Number: US-BRISTOL-MYERS SQUIBB COMPANY-16367633

PATIENT
  Age: 54 Year
  Sex: Female
  Weight: 61 kg

DRUGS (12)
  1. ABILIFY [Suspect]
     Indication: BIPOLAR DISORDER
     Dosage: Dose reduced to 15mg
  2. TEMAZEPAM [Concomitant]
  3. WELLBUTRIN [Concomitant]
  4. INDERAL [Concomitant]
  5. BUSPIRONE [Concomitant]
  6. TRILEPTAL [Concomitant]
  7. BABY ASPIRIN [Concomitant]
  8. OMEGA-3 [Concomitant]
  9. VITAMIN C [Concomitant]
  10. VITAMIN D [Concomitant]
  11. MULTIVITAMIN [Concomitant]
  12. VIVELLE [Concomitant]

REACTIONS (3)
  - Tremor [Recovered/Resolved]
  - Tic [Recovered/Resolved]
  - Blood glucose increased [Unknown]
